FAERS Safety Report 5489600-8 (Version None)
Quarter: 2007Q4

REPORT INFORMATION
  Report Type: 
  Country: None (occurrence: None)
  Receive Date: 20071018
  Receipt Date: 20071011
  Transmission Date: 20080405
  Serious: Yes (Other)
  Sender: FDA-Public Use
  Company Number: US-MERCK-0708USA04281

PATIENT
  Age: 34 Year
  Sex: Male
  Weight: 80 kg

DRUGS (4)
  1. VYTORIN [Suspect]
     Indication: HYPERCHOLESTEROLAEMIA
     Route: 048
     Dates: start: 20070101, end: 20070701
  2. LOTREL [Concomitant]
     Route: 065
  3. PROPECIA [Concomitant]
     Route: 048
  4. PRILOSEC [Concomitant]
     Route: 065

REACTIONS (1)
  - ANAEMIA [None]
